FAERS Safety Report 17169336 (Version 1)
Quarter: 2019Q4

REPORT INFORMATION
  Report Type: Spontaneous
  Country: IT (occurrence: IT)
  Receive Date: 20191218
  Receipt Date: 20191218
  Transmission Date: 20200122
  Serious: Yes (Other)
  Sender: FDA-Public Use
  Company Number: IT-PFIZER INC-2019544931

PATIENT
  Age: 21 Year
  Sex: Female

DRUGS (2)
  1. CEFAZOLINA [Suspect]
     Active Substance: CEFAZOLIN SODIUM
     Indication: ANTIBIOTIC PROPHYLAXIS
     Dosage: 2 G, UNK
     Route: 042
     Dates: start: 20191128, end: 20191128
  2. PANTORC [Suspect]
     Active Substance: PANTOPRAZOLE SODIUM
     Indication: PROPHYLAXIS
     Dosage: 40 MG, UNK
     Route: 042
     Dates: start: 20191128, end: 20191128

REACTIONS (3)
  - Hypotension [Not Recovered/Not Resolved]
  - Rash [Not Recovered/Not Resolved]
  - Hyperthermia [Not Recovered/Not Resolved]

NARRATIVE: CASE EVENT DATE: 20191128
